FAERS Safety Report 4436846-3 (Version None)
Quarter: 2004Q3

REPORT INFORMATION
  Report Type: 
  Country: None (occurrence: None)
  Receive Date: 20040830
  Receipt Date: 20040506
  Transmission Date: 20050211
  Serious: Yes (Other)
  Sender: FDA-Public Use
  Company Number: US-ROCHE-367142

PATIENT
  Age: 53 Year
  Sex: Male
  Weight: 73 kg

DRUGS (4)
  1. PEGASYS [Suspect]
     Indication: HEPATITIS C VIRUS
     Route: 058
     Dates: start: 20031206
  2. PEGASYS [Suspect]
     Route: 058
     Dates: start: 20040514
  3. COPEGUS [Suspect]
     Indication: HEPATITIS C VIRUS
     Dosage: 2 IN THE MORNING AND 3 IN THE EVENING.
     Route: 048
     Dates: start: 20031206
  4. COPEGUS [Suspect]
     Dosage: 2 IN THE MORNING AND 3 IN THE EVENING.
     Route: 048
     Dates: start: 20040514

REACTIONS (2)
  - RETINAL EXUDATES [None]
  - VITREOUS DETACHMENT [None]
